FAERS Safety Report 7899644-4 (Version None)
Quarter: 2011Q4

REPORT INFORMATION
  Report Type: 
  Country: None (occurrence: None)
  Receive Date: 20111107
  Receipt Date: 20110916
  Transmission Date: 20120403
  Serious: No
  Sender: FDA-Public Use
  Company Number: US-AMGEN-USASP2011048156

PATIENT
  Sex: Female

DRUGS (4)
  1. AMBIEN [Concomitant]
     Dosage: 10 MG, UNK
  2. ENBREL [Suspect]
     Indication: PRODUCT USED FOR UNKNOWN INDICATION
     Dosage: 50 MG, QWK
  3. ATENOLOL [Concomitant]
     Dosage: 50 MG, UNK
  4. LISINOPRIL [Concomitant]
     Dosage: 20 MG, UNK
     Route: 048

REACTIONS (3)
  - INJECTION SITE ERYTHEMA [None]
  - INJECTION SITE REACTION [None]
  - INJECTION SITE SWELLING [None]
